FAERS Safety Report 23697440 (Version 2)
Quarter: 2024Q2

REPORT INFORMATION
  Report Type: Spontaneous
  Country: US (occurrence: US)
  Receive Date: 20240402
  Receipt Date: 20240527
  Transmission Date: 20240715
  Serious: No
  Sender: FDA-Public Use
  Company Number: US-JNJFOC-20240401670

PATIENT
  Age: 89 Year
  Sex: Male
  Weight: 70.37 kg

DRUGS (7)
  1. DARZALEX FASPRO [Suspect]
     Active Substance: DARATUMUMAB\HYALURONIDASE-FIHJ
     Indication: Plasma cell myeloma
     Route: 058
  2. TRAMADOL [Concomitant]
     Active Substance: TRAMADOL\TRAMADOL HYDROCHLORIDE
     Indication: Pain
     Dates: start: 20220727
  3. AVAPRO [Concomitant]
     Active Substance: IRBESARTAN
     Indication: Cardiac failure congestive
     Dates: start: 20231220
  4. ROCALTROL [Concomitant]
     Active Substance: CALCITRIOL
     Indication: Blood calcium decreased
     Dates: start: 20220610
  5. COREG [Concomitant]
     Active Substance: CARVEDILOL
     Indication: Cardiac failure congestive
     Dates: start: 20210125
  6. BUMEX [Concomitant]
     Active Substance: BUMETANIDE
     Indication: Cardiac failure congestive
     Dates: start: 20210125
  7. PROSCAR [Concomitant]
     Active Substance: FINASTERIDE
     Indication: Benign prostatic hyperplasia
     Dates: start: 20151022

REACTIONS (3)
  - Illness [Unknown]
  - Diarrhoea [Recovered/Resolved]
  - Vomiting [Recovered/Resolved]

NARRATIVE: CASE EVENT DATE: 20240326
